FAERS Safety Report 13988846 (Version 2)
Quarter: 2017Q4

REPORT INFORMATION
  Report Type: Spontaneous
  Country: JP (occurrence: JP)
  Receive Date: 20170919
  Receipt Date: 20171030
  Transmission Date: 20180321
  Serious: Yes (Hospitalization, Other)
  Sender: FDA-Public Use
  Company Number: JP-BEH-2017083603

PATIENT
  Age: 25 Month
  Sex: Male

DRUGS (4)
  1. HUMAN IMMUNOGLOBULIN (NC) [Suspect]
     Active Substance: HUMAN IMMUNOGLOBULIN G
     Indication: KAWASAKI^S DISEASE
     Route: 065
  2. MIDAZOLAM [Concomitant]
     Active Substance: MIDAZOLAM HYDROCHLORIDE
     Indication: SEIZURE
     Route: 065
  3. ASPIRIN. [Concomitant]
     Active Substance: ASPIRIN
     Route: 065
  4. THIAMYLAL SODIUM [Concomitant]
     Active Substance: THIAMYLAL SODIUM
     Indication: SEIZURE
     Route: 065

REACTIONS (10)
  - Intensive care [Recovered/Resolved]
  - Capillary leak syndrome [Recovered/Resolved]
  - Coma [Recovered/Resolved]
  - Posterior reversible encephalopathy syndrome [Recovered/Resolved]
  - Hypertension [Recovered/Resolved]
  - Gait disturbance [Recovered/Resolved]
  - CSF protein increased [Recovered/Resolved]
  - Mechanical ventilation [Recovered/Resolved]
  - Generalised tonic-clonic seizure [Recovered/Resolved]
  - Muscular weakness [Recovered/Resolved]
